FAERS Safety Report 13776084 (Version 1)
Quarter: 2017Q3

REPORT INFORMATION
  Report Type: Spontaneous
  Country: US (occurrence: US)
  Receive Date: 20170721
  Receipt Date: 20170721
  Transmission Date: 20171127
  Serious: Yes (Other)
  Sender: FDA-Public Use
  Company Number: US-LPDUSPRD-20171034

PATIENT
  Age: 15 Year
  Sex: Male
  Weight: 58.8 kg

DRUGS (1)
  1. TRANEXAMIC ACID INJECTION(0517-0960-01) [Suspect]
     Active Substance: TRANEXAMIC ACID
     Dosage: 5 MG/KG/HR
     Route: 040

REACTIONS (1)
  - Anaphylactic reaction [Unknown]
